FAERS Safety Report 12244752 (Version 1)
Quarter: 2016Q2

REPORT INFORMATION
  Report Type: Spontaneous
  Country: US (occurrence: None)
  Receive Date: 20160406
  Receipt Date: 20160406
  Transmission Date: 20160815
  Serious: No
  Sender: FDA-Public Use
  Company Number: None

PATIENT
  Age: 56 Year
  Sex: Female
  Weight: 58.97 kg

DRUGS (19)
  1. GLUCOSAMINE [Concomitant]
     Active Substance: GLUCOSAMINE
  2. GINKGO BILOBA [Concomitant]
     Active Substance: GINKGO
  3. RECLAST [Suspect]
     Active Substance: ZOLEDRONIC ACID
     Indication: OSTEOPOROSIS
     Dosage: 1 X YEARLY
     Dates: start: 20160316
  4. ACETAMINOPHEN. [Concomitant]
     Active Substance: ACETAMINOPHEN
  5. VITAMIN C [Concomitant]
     Active Substance: ASCORBIC ACID
  6. ALPROZOLAM [Concomitant]
     Active Substance: ALPRAZOLAM
  7. SUMATRIPTAN. [Concomitant]
     Active Substance: SUMATRIPTAN
  8. VOLTAREN [Concomitant]
     Active Substance: DICLOFENAC SODIUM
  9. CALCIUM [Concomitant]
     Active Substance: CALCIUM
  10. VITAMIN B COMPLEX [Concomitant]
     Active Substance: CYANOCOBALAMIN\DEXPANTHENOL\NIACINAMIDE\PYRIDOXINE HYDROCHLORIDE\RIBOFLAVIN 5^-PHOSPHATE SODIUM\THIAMINE HYDROCHLORIDE\VITAMIN B COMPLEX
  11. ESTRADIOL. [Concomitant]
     Active Substance: ESTRADIOL
  12. ALLER-FEX [Concomitant]
  13. BUTLFTL/APAP/CCAFF [Concomitant]
  14. ACETAMINOPHEN\HYDROCODONE BITARTRATE [Concomitant]
     Active Substance: ACETAMINOPHEN\HYDROCODONE BITARTRATE
  15. VITAMIN D3 [Concomitant]
     Active Substance: CHOLECALCIFEROL
  16. MAGNESIUM [Concomitant]
     Active Substance: MAGNESIUM
  17. BIOTIN [Concomitant]
     Active Substance: BIOTIN
  18. BUPROPION HCL [Concomitant]
     Active Substance: BUPROPION HYDROCHLORIDE
  19. CELECOXIB. [Concomitant]
     Active Substance: CELECOXIB

REACTIONS (21)
  - Joint lock [None]
  - Headache [None]
  - Anxiety [None]
  - Asthenia [None]
  - Weight decreased [None]
  - Arthralgia [None]
  - Neck pain [None]
  - Lymphadenopathy [None]
  - Crying [None]
  - Sleep disorder due to general medical condition, insomnia type [None]
  - Bone pain [None]
  - Dehydration [None]
  - Chest pain [None]
  - Back pain [None]
  - Impaired work ability [None]
  - Pain in extremity [None]
  - Musculoskeletal pain [None]
  - Movement disorder [None]
  - Ear pain [None]
  - Malaise [None]
  - Pyrexia [None]
